FAERS Safety Report 18757937 (Version 2)
Quarter: 2021Q1

REPORT INFORMATION
  Report Type: Spontaneous
  Country: US (occurrence: US)
  Receive Date: 20210119
  Receipt Date: 20210201
  Transmission Date: 20210419
  Serious: Yes (Other)
  Sender: FDA-Public Use
  Company Number: US-RIGEL PHARMACEUTICALS, INC.-2021FOS000013

PATIENT
  Age: 58 Year
  Sex: Female

DRUGS (1)
  1. TAVALISSE [Suspect]
     Active Substance: FOSTAMATINIB
     Indication: IMMUNE THROMBOCYTOPENIA
     Dosage: 150 MG, BID
     Route: 048

REACTIONS (5)
  - Platelet count decreased [Unknown]
  - Viral infection [Unknown]
  - Headache [Unknown]
  - Epistaxis [Unknown]
  - Product dose omission issue [Unknown]

NARRATIVE: CASE EVENT DATE: 20201228
